FAERS Safety Report 4726427-6 (Version None)
Quarter: 2005Q3

REPORT INFORMATION
  Report Type: 
  Country: None (occurrence: None)
  Receive Date: 20050725
  Receipt Date: 20050712
  Transmission Date: 20060218
  Serious: Yes (Hospitalization)
  Sender: FDA-Public Use
  Company Number: 2005BI010248

PATIENT
  Sex: Female
  Weight: 181.4388 kg

DRUGS (1)
  1. AVONEX [Suspect]
     Indication: MULTIPLE SCLEROSIS
     Dosage: IM
     Route: 030

REACTIONS (3)
  - GASTRIC BYPASS [None]
  - MULTIPLE SCLEROSIS [None]
  - POST PROCEDURAL COMPLICATION [None]
